FAERS Safety Report 4677930-9 (Version None)
Quarter: 2005Q2

REPORT INFORMATION
  Report Type: 
  Country: None (occurrence: None)
  Receive Date: 20050527
  Receipt Date: 20050527
  Transmission Date: 20051028
  Serious: Yes (Other)
  Sender: FDA-Public Use
  Company Number: None

PATIENT
  Age: 37 Year
  Sex: Male

DRUGS (2)
  1. FUROSEMIDE [Suspect]
     Indication: MEDICATION ERROR
     Dosage: 20 MG, 1 TAB DAILY
  2. FLUOXETINE [Suspect]

REACTIONS (5)
  - DIZZINESS [None]
  - FEELING ABNORMAL [None]
  - MEDICATION ERROR [None]
  - POLLAKIURIA [None]
  - THIRST [None]
